FAERS Safety Report 8780073 (Version 1)
Quarter: 2012Q4

REPORT INFORMATION
  Report Type: Spontaneous
  Country: US (occurrence: None)
  Receive Date: 20120831
  Receipt Date: 20120831
  Transmission Date: 20130627
  Serious: Yes (Other)
  Sender: FDA-Public Use
  Company Number: None

PATIENT
  Age: 75 Year
  Sex: Female
  Weight: 68.04 kg

DRUGS (2)
  1. VENOFER [Suspect]
     Indication: IRON DEFICIENCY ANEMIA
     Route: 042
     Dates: start: 20120806
  2. VENOFER [Suspect]
     Indication: CHRONIC KIDNEY DISEASE
     Route: 042
     Dates: start: 20120806

REACTIONS (2)
  - Blood pressure increased [None]
  - Cardiac flutter [None]
